FAERS Safety Report 12216387 (Version 6)
Quarter: 2016Q4

REPORT INFORMATION
  Report Type: Report from Study
  Country: US (occurrence: US)
  Receive Date: 20160329
  Receipt Date: 20161031
  Transmission Date: 20170207
  Serious: Yes (Hospitalization, Other)
  Sender: FDA-Public Use
  Company Number: US-GILEAD-2016-0193446

PATIENT
  Age: 70 Year
  Sex: Female
  Weight: 80.27 kg

DRUGS (22)
  1. CYMBALTA [Concomitant]
     Active Substance: DULOXETINE HYDROCHLORIDE
  2. SYNTHROID [Concomitant]
     Active Substance: LEVOTHYROXINE SODIUM
  3. REMICADE [Concomitant]
     Active Substance: INFLIXIMAB
  4. TREPROSTINIL [Concomitant]
     Active Substance: TREPROSTINIL
  5. TORSEMIDE. [Concomitant]
     Active Substance: TORSEMIDE
  6. KLOR-CON [Concomitant]
     Active Substance: POTASSIUM CHLORIDE
  7. SILDENAFIL. [Concomitant]
     Active Substance: SILDENAFIL
  8. VITAMIN D [Concomitant]
     Active Substance: CHOLECALCIFEROL
  9. PRAVASTATIN. [Concomitant]
     Active Substance: PRAVASTATIN
  10. AMBRISENTAN [Suspect]
     Active Substance: AMBRISENTAN
     Indication: SCLERODERMA
  11. CARDIZEM [Concomitant]
     Active Substance: DILTIAZEM HYDROCHLORIDE
  12. NEXIUM [Concomitant]
     Active Substance: ESOMEPRAZOLE MAGNESIUM
  13. FOLIC ACID. [Concomitant]
     Active Substance: FOLIC ACID
  14. AMBRISENTAN [Suspect]
     Active Substance: AMBRISENTAN
     Indication: INTERSTITIAL LUNG DISEASE
  15. ORENITRAM [Suspect]
     Active Substance: TREPROSTINIL
     Indication: PRODUCT USED FOR UNKNOWN INDICATION
     Dosage: 1 MG, BID
     Route: 065
  16. REVATIO [Concomitant]
     Active Substance: SILDENAFIL CITRATE
  17. ASPIRIN                            /00002701/ [Concomitant]
     Active Substance: ASPIRIN
  18. PREDNISONE. [Concomitant]
     Active Substance: PREDNISONE
  19. AMBRISENTAN [Suspect]
     Active Substance: AMBRISENTAN
     Indication: PULMONARY HYPERTENSION
     Dosage: 10 MG, QD
     Route: 065
     Dates: start: 20100128
  20. CALCITRIOL. [Concomitant]
     Active Substance: CALCITRIOL
  21. CITRACAL                           /00751520/ [Concomitant]
     Active Substance: CALCIUM CITRATE
  22. OXYGEN. [Concomitant]
     Active Substance: OXYGEN

REACTIONS (13)
  - Nausea [Not Recovered/Not Resolved]
  - Weight increased [Recovered/Resolved]
  - Fluid retention [Unknown]
  - Chest discomfort [Not Recovered/Not Resolved]
  - Oxygen saturation decreased [Recovered/Resolved]
  - Malaise [Not Recovered/Not Resolved]
  - Balance disorder [Unknown]
  - Viral infection [Recovered/Resolved]
  - Disease progression [Not Recovered/Not Resolved]
  - Fall [Unknown]
  - Headache [Not Recovered/Not Resolved]
  - Dyspnoea exertional [Recovered/Resolved]
  - Heart rate increased [Recovered/Resolved]

NARRATIVE: CASE EVENT DATE: 20151022
